FAERS Safety Report 23176232 (Version 1)
Quarter: 2023Q4

REPORT INFORMATION
  Report Type: Spontaneous
  Country: US (occurrence: US)
  Receive Date: 20231113
  Receipt Date: 20231113
  Transmission Date: 20240110
  Serious: Yes (Hospitalization, Other)
  Sender: FDA-Public Use
  Company Number: US-SA-2023SA348177

PATIENT
  Age: 27 Year
  Sex: Male

DRUGS (1)
  1. DUPILUMAB [Suspect]
     Active Substance: DUPILUMAB
     Indication: Dermatitis atopic
     Dosage: 200 MG EVERY TWO WEEKS

REACTIONS (15)
  - Evans syndrome [Recovering/Resolving]
  - Headache [Recovering/Resolving]
  - Vision blurred [Recovering/Resolving]
  - Vitreous floaters [Recovering/Resolving]
  - Tachycardia [Recovering/Resolving]
  - Retinal haemorrhage [Recovering/Resolving]
  - Macular oedema [Recovering/Resolving]
  - Retinal exudates [Recovering/Resolving]
  - Autoimmune haemolytic anaemia [Recovering/Resolving]
  - Anaemia [Recovering/Resolving]
  - Lymphopenia [Recovering/Resolving]
  - Thrombocytopenia [Recovering/Resolving]
  - Polychromasia [Recovering/Resolving]
  - Hepatosplenomegaly [Recovering/Resolving]
  - Lymphadenopathy [Recovering/Resolving]
